FAERS Safety Report 15073375 (Version 5)
Quarter: 2019Q4

REPORT INFORMATION
  Report Type: Spontaneous
  Country: JP (occurrence: JP)
  Receive Date: 20180627
  Receipt Date: 20191120
  Transmission Date: 20200122
  Serious: Yes (Life-Threatening, Hospitalization)
  Sender: FDA-Public Use
  Company Number: PHJP2018JP012454

PATIENT
  Age: 63 Year
  Sex: Female
  Weight: 59.6 kg

DRUGS (13)
  1. METGLUCO [Suspect]
     Active Substance: METFORMIN HYDROCHLORIDE
     Indication: TYPE 2 DIABETES MELLITUS
     Dosage: 250 MG, TID
     Route: 048
     Dates: start: 201106, end: 201409
  2. METGLUCO [Suspect]
     Active Substance: METFORMIN HYDROCHLORIDE
     Dosage: 250 MG, 7QD
     Route: 048
     Dates: start: 201410, end: 201601
  3. METFORMIN HYDROCHLORIDE. [Suspect]
     Active Substance: METFORMIN HYDROCHLORIDE
     Dosage: 1250 MG, QD
     Route: 048
  4. EQUMET [Suspect]
     Active Substance: METFORMIN HYDROCHLORIDE\VILDAGLIPTIN
     Indication: TYPE 2 DIABETES MELLITUS
     Dosage: 1 DF, BID
     Route: 048
     Dates: start: 201602, end: 20180610
  5. VOGLIBOSE [Concomitant]
     Active Substance: VOGLIBOSE
     Indication: TYPE 2 DIABETES MELLITUS
     Dosage: 0.3 MG, TID
     Route: 048
     Dates: start: 20160726, end: 20180610
  6. PRAVASTATIN SODIUM. [Concomitant]
     Active Substance: PRAVASTATIN SODIUM
     Indication: HYPERLIPIDAEMIA
     Dosage: 5 MG, QD
     Route: 048
     Dates: start: 201308
  7. METFORMIN HYDROCHLORIDE. [Suspect]
     Active Substance: METFORMIN HYDROCHLORIDE
     Dosage: 500 MG, QD
     Route: 048
     Dates: start: 201602, end: 20180610
  8. REZALTAS [Concomitant]
     Active Substance: AZELNIDIPINE\OLMESARTAN MEDOXOMIL
     Indication: HYPERTENSION
     Dosage: 1 DF, QD
     Route: 048
     Dates: start: 20151208
  9. METFORMIN HYDROCHLORIDE. [Suspect]
     Active Substance: METFORMIN HYDROCHLORIDE
     Indication: TYPE 2 DIABETES MELLITUS
     Dosage: 500 MG, QD
     Route: 048
     Dates: start: 201410, end: 201601
  10. OLMESARTAN MEDOXOMIL. [Concomitant]
     Active Substance: OLMESARTAN MEDOXOMIL
     Indication: HYPERTENSION
     Dosage: 20 MG, QD
     Route: 048
     Dates: start: 201007
  11. DOCETAXEL INTRAVENOUS INFUSION 20MG/2ML [Suspect]
     Active Substance: DOCETAXEL
     Indication: BREAST CANCER
     Dosage: 120 MG, QD
     Route: 041
     Dates: start: 20180529, end: 20180529
  12. METGLUCO [Suspect]
     Active Substance: METFORMIN HYDROCHLORIDE
     Dosage: 250 MG, TID
     Route: 048
     Dates: start: 201602, end: 20180610
  13. JARDIANCE [Concomitant]
     Active Substance: EMPAGLIFLOZIN
     Indication: TYPE 2 DIABETES MELLITUS
     Dosage: 10 MG, QD
     Route: 048
     Dates: start: 20170929, end: 20180610

REACTIONS (21)
  - Dyspnoea [Recovering/Resolving]
  - Shock [Unknown]
  - Renal impairment [Recovering/Resolving]
  - Enteritis infectious [Recovering/Resolving]
  - Diarrhoea [Recovered/Resolved]
  - Prerenal failure [Recovered/Resolved]
  - Hypophagia [Unknown]
  - Circulatory collapse [Unknown]
  - Inflammatory marker increased [Recovering/Resolving]
  - Hypoglycaemia [Unknown]
  - Drug level increased [Unknown]
  - Hypotension [Unknown]
  - Respiratory failure [Unknown]
  - Septic shock [Recovering/Resolving]
  - Lactic acidosis [Recovered/Resolved]
  - Dehydration [Unknown]
  - Depressed level of consciousness [Unknown]
  - Tachypnoea [Unknown]
  - Hypokalaemia [Recovered/Resolved]
  - Hypocapnia [Recovering/Resolving]
  - Blood pressure decreased [Recovering/Resolving]

NARRATIVE: CASE EVENT DATE: 20180601
